FAERS Safety Report 14646889 (Version 2)
Quarter: 2018Q2

REPORT INFORMATION
  Report Type: Spontaneous
  Country: BR (occurrence: BR)
  Receive Date: 20180316
  Receipt Date: 20180518
  Transmission Date: 20180711
  Serious: Yes (Death, Hospitalization, Other)
  Sender: FDA-Public Use
  Company Number: BR-AMGEN-BRASP2018036231

PATIENT
  Age: 73 Year
  Sex: Female
  Weight: 65 kg

DRUGS (2)
  1. KYPROLIS [Suspect]
     Active Substance: CARFILZOMIB
     Indication: PLASMA CELL MYELOMA
     Dosage: 65 MG, EACH 2 WEEKS
     Route: 042
     Dates: start: 201710, end: 201801
  2. DECADRON [Concomitant]
     Active Substance: DEXAMETHASONE
     Indication: PLASMA CELL MYELOMA
     Dosage: UNK
     Dates: start: 201710

REACTIONS (9)
  - Plasma cell myeloma [Fatal]
  - Pulmonary oedema [Unknown]
  - Ischaemic stroke [Fatal]
  - Aspiration bronchial [Unknown]
  - Pleural effusion [Unknown]
  - Cardiac failure [Fatal]
  - Septic shock [Fatal]
  - Infection [Unknown]
  - Blood pressure increased [Unknown]

NARRATIVE: CASE EVENT DATE: 2018
